FAERS Safety Report 9237966 (Version 2)
Quarter: 2013Q2

REPORT INFORMATION
  Report Type: Spontaneous
  Country: US (occurrence: None)
  Receive Date: 20130403
  Receipt Date: 20130423
  Transmission Date: 20140414
  Serious: Yes (Hospitalization, Other)
  Sender: FDA-Public Use
  Company Number: 2013PROUSA02680

PATIENT
  Age: 74 Year
  Sex: Male
  Weight: 110.7 kg

DRUGS (22)
  1. PROVENGE (SIPULEUCEL-T) SUSPENSION [Suspect]
     Indication: PROSTATE CANCER METASTATIC
     Route: 042
     Dates: start: 20120412, end: 20120412
  2. GILMEPIRIDE (GIMEPIRIDE) [Concomitant]
  3. JANUVIA (SITAGLIPTIN PHOSPHATE) [Concomitant]
  4. METFORMIN HCL (METFORMIN HYDROCHLORIDE) [Concomitant]
  5. LIPITOR (ATORVASTATIN CALCIUM) [Concomitant]
  6. CARVEDILOL (CARVEDILOL) [Concomitant]
  7. LISINOPRIL (LISINPROL) [Concomitant]
  8. SPIRONOLACTONE (SPIRONOLACTONE) [Concomitant]
  9. ASPIRIN (ACETYLSALICYLIC ACID) [Concomitant]
  10. MULTIVITAMINS WITH MINERALS [Concomitant]
  11. PANTOPRAZOLE SODIUM (PANTOPRAZOLE SODIUM SESQUIHYDRATE) [Concomitant]
  12. BICALUTAMIDE (BICALUTAMIDE) [Concomitant]
  13. INSULIN (INSULIN PORCINE) [Concomitant]
  14. DEXAMETHASONE (DEXAMETHASONE) [Concomitant]
  15. ASCORBIC ACID (ASCORBIC ACID) [Concomitant]
  16. ZINC SULFATE (ZINC SULFATE) [Concomitant]
  17. ZOSYN (PIPERACILLIN SODIUM, TAZOBACTAM SODIUM) [Concomitant]
  18. INSULIN REGULAR (INSULIN BOVINE) [Concomitant]
  19. FLOMAX (TAMSULOSIN HYDROCHLORIDE) [Concomitant]
  20. TEMAZEPAM (TEMAZEPAM) [Concomitant]
  21. ZOFRAN (ONDANSETRON HYDROCHLORIDE) [Concomitant]
  22. DILAUDID (HYDROMORPHONE HYDROCHLORIDE) [Concomitant]

REACTIONS (10)
  - Cerebrovascular accident [None]
  - Decubitus ulcer [None]
  - Urinary tract infection [None]
  - Hypotension [None]
  - Subdural haematoma [None]
  - Pleural effusion [None]
  - Pneumonia [None]
  - Sepsis [None]
  - Cardiac failure congestive [None]
  - Rectal haemorrhage [None]
